FAERS Safety Report 5419003-3 (Version None)
Quarter: 2007Q3

REPORT INFORMATION
  Report Type: 
  Country: None (occurrence: None)
  Receive Date: 20070817
  Receipt Date: 20070809
  Transmission Date: 20080115
  Serious: Yes (Other)
  Sender: FDA-Public Use
  Company Number: US-PFIZER INC-2007066549

PATIENT
  Sex: Female
  Weight: 79.4 kg

DRUGS (5)
  1. DETROL LA [Suspect]
     Indication: HYPERTONIC BLADDER
  2. CELEBREX [Concomitant]
     Dosage: FREQ:DAILY
  3. ACIPHEX [Concomitant]
  4. LORAZEPAM [Concomitant]
  5. FERROUS SULFATE [Concomitant]

REACTIONS (1)
  - GLAUCOMA [None]
